FAERS Safety Report 4616784-3 (Version None)
Quarter: 2005Q2

REPORT INFORMATION
  Report Type: 
  Country: None (occurrence: None)
  Receive Date: 20050311
  Receipt Date: 20050107
  Transmission Date: 20051028
  Serious: Yes (Other)
  Sender: FDA-Public Use
  Company Number: 2005-00023

PATIENT
  Age: 56 Year
  Sex: Male
  Weight: 97.5 kg

DRUGS (6)
  1. VELCADE [Suspect]
     Indication: MULTIPLE MYELOMA
     Dates: start: 20040901, end: 20041101
  2. INSULIN [Concomitant]
  3. PROTONIX [Concomitant]
  4. LIPITOR [Concomitant]
  5. OXYCONTIN [Concomitant]
  6. OXYGEN (OXYGEN) [Concomitant]

REACTIONS (3)
  - NAUSEA [None]
  - NEUROPATHIC PAIN [None]
  - VISUAL ACUITY REDUCED [None]
